FAERS Safety Report 22526436 (Version 1)
Quarter: 2023Q2

REPORT INFORMATION
  Report Type: Spontaneous
  Country: US (occurrence: None)
  Receive Date: 20230605
  Receipt Date: 20230605
  Transmission Date: 20230722
  Serious: No
  Sender: FDA-Public Use
  Company Number: None

PATIENT
  Sex: Female

DRUGS (8)
  1. IBRANCE [Suspect]
     Active Substance: PALBOCICLIB
     Indication: Breast cancer female
     Dosage: FREQUENCY : DAILY;?
     Route: 048
  2. NAPROXEN [Concomitant]
     Active Substance: NAPROXEN
  3. TRAMADOL [Concomitant]
     Active Substance: TRAMADOL
  4. NORCO [Concomitant]
     Active Substance: ACETAMINOPHEN\HYDROCODONE BITARTRATE
  5. HYDROMORPHONE [Concomitant]
     Active Substance: HYDROMORPHONE
  6. ONDANSETRON [Concomitant]
     Active Substance: ONDANSETRON
  7. MARINOL [Concomitant]
     Active Substance: DRONABINOL
  8. FASLODEX [Concomitant]
     Active Substance: FULVESTRANT

REACTIONS (1)
  - Hospice care [None]
